FAERS Safety Report 8402413-X (Version None)
Quarter: 2012Q2

REPORT INFORMATION
  Report Type: 
  Country: None (occurrence: None)
  Receive Date: 20120601
  Receipt Date: 20120527
  Transmission Date: 20120825
  Serious: Yes (Other)
  Sender: FDA-Public Use
  Company Number: US-PFIZER INC-2012127671

PATIENT
  Sex: Female

DRUGS (4)
  1. LOSARTAN [Concomitant]
     Indication: BLOOD PRESSURE ABNORMAL
     Dosage: 25 MG, DAILY
  2. HYDROCHLOROTHIAZIDE [Concomitant]
     Indication: BLOOD PRESSURE ABNORMAL
     Dosage: HALF A TABLET OF 25 MG, DAILY
     Route: 048
  3. BENAZEPRIL [Concomitant]
     Indication: BLOOD PRESSURE ABNORMAL
     Dosage: HALF A TABLET OF 40 MG, 2X/DAY
     Route: 048
  4. ROBITUSSIN COUGH AND CHEST CONGESTION DM MAX [Suspect]
     Dosage: UNK, TWO TEASPOONS, JUST ONCE
     Route: 048
     Dates: start: 20120526, end: 20120526

REACTIONS (1)
  - BLOOD PRESSURE INCREASED [None]
